FAERS Safety Report 22638885 (Version 3)
Quarter: 2023Q2

REPORT INFORMATION
  Report Type: Spontaneous
  Country: US (occurrence: US)
  Receive Date: 20230626
  Receipt Date: 20230628
  Transmission Date: 20230722
  Serious: No
  Sender: FDA-Public Use
  Company Number: US-ABBVIE-5304088

PATIENT
  Age: 59 Year
  Sex: Female

DRUGS (2)
  1. BOTULINUM TOXIN TYPE A [Suspect]
     Active Substance: BOTULINUM TOXIN TYPE A
     Indication: Migraine
     Dosage: 155 DOSAGE FORM
     Route: 065
     Dates: start: 202102, end: 202102
  2. BOTULINUM TOXIN TYPE A [Suspect]
     Active Substance: BOTULINUM TOXIN TYPE A
     Indication: Migraine
     Dosage: TIME INTERVAL: AS NECESSARY: 31 SITE OF INJECTION TREATMENT PARADIGM?155 DOSAGE FORM
     Route: 030
     Dates: start: 20221111, end: 20221111

REACTIONS (2)
  - Migraine [Recovered/Resolved]
  - Paraesthesia [Recovered/Resolved]

NARRATIVE: CASE EVENT DATE: 20230616
